FAERS Safety Report 8661390 (Version 2)
Quarter: 2014Q1

REPORT INFORMATION
  Report Type: Spontaneous
  Country: US (occurrence: None)
  Receive Date: 20120323
  Receipt Date: 20130305
  Transmission Date: 20141002
  Serious: Yes (Other)
  Sender: FDA-Public Use
  Company Number: 163-21880-11102991

PATIENT
  Age: 76 Year
  Sex: Male

DRUGS (2)
  1. REVLIMID [Suspect]
     Indication: PLASMA CELL MYELOMA
     Dosage: 25 MG, QD X 21 DAYS, PO ; 25 MG, QD X 21 DAYS, PO ; 15 MG, FOR 21 DAYS, PO
     Route: 048
     Dates: start: 20110307, end: 20110418
  2. VELCADE [Concomitant]

REACTIONS (3)
  - Neutropenia [None]
  - Rash [None]
  - Platelet count decreased [None]
